FAERS Safety Report 16400730 (Version 1)
Quarter: 2019Q2

REPORT INFORMATION
  Report Type: Spontaneous
  Country: TR (occurrence: TR)
  Receive Date: 20190606
  Receipt Date: 20190606
  Transmission Date: 20190711
  Serious: Yes (Life-Threatening, Other)
  Sender: FDA-Public Use
  Company Number: TR-GLAXOSMITHKLINE-TR2019GSK098458

PATIENT
  Age: 61 Year
  Sex: Female

DRUGS (3)
  1. TRIMETHOPRIM + SULFAMETHOXAZOL [Suspect]
     Active Substance: SULFAMERAZINE SODIUM\TRIMETHOPRIM
     Indication: ANTIBIOTIC THERAPY
     Dosage: UNK
  2. AMPICILLIN-SULBACTAM [Suspect]
     Active Substance: AMPICILLIN SODIUM\SULBACTAM SODIUM
     Indication: ANTIBIOTIC THERAPY
     Dosage: UNK
  3. DICLOFENAC SODIUM. [Suspect]
     Active Substance: DICLOFENAC SODIUM
     Indication: PRODUCT USED FOR UNKNOWN INDICATION
     Dosage: UNK
     Route: 030

REACTIONS (16)
  - Histology abnormal [Unknown]
  - Drug resistance [Unknown]
  - Medication error [Unknown]
  - Abscess [Unknown]
  - Skin discolouration [Unknown]
  - Hypotension [Unknown]
  - Necrotising fasciitis [Recovering/Resolving]
  - Bacterial disease carrier [Unknown]
  - Pain in extremity [Unknown]
  - Necrosis [Unknown]
  - Musculoskeletal pain [Unknown]
  - General physical health deterioration [Unknown]
  - Crepitations [Unknown]
  - Agitation [Unknown]
  - Acinetobacter test positive [Unknown]
  - Klebsiella test positive [Unknown]
